FAERS Safety Report 9510993 (Version 1)
Quarter: 2013Q3

REPORT INFORMATION
  Report Type: Spontaneous
  Country: US (occurrence: None)
  Receive Date: 20130909
  Receipt Date: 20130909
  Transmission Date: 20140515
  Serious: No
  Sender: FDA-Public Use
  Company Number: None

PATIENT
  Age: 59 Year
  Sex: Male
  Weight: 88.45 kg

DRUGS (1)
  1. LAMICTAL [Suspect]
     Dosage: 1/2 TAB QD ?PRIOR TO 2009 TO PRESENT

REACTIONS (4)
  - Drug ineffective [None]
  - Mania [None]
  - Suicidal ideation [None]
  - Product substitution issue [None]
